FAERS Safety Report 6741938-X (Version None)
Quarter: 2010Q2

REPORT INFORMATION
  Report Type: 
  Country: None (occurrence: None)
  Receive Date: 20100526
  Receipt Date: 20100520
  Transmission Date: 20101027
  Serious: Yes (Other)
  Sender: FDA-Public Use
  Company Number: B0656136A

PATIENT

DRUGS (3)
  1. ZOFRAN [Suspect]
     Indication: DRUG USE FOR UNKNOWN INDICATION
  2. NAVELBINE [Suspect]
     Indication: DRUG USE FOR UNKNOWN INDICATION
  3. CARBOPLATIN [Suspect]
     Indication: DRUG USE FOR UNKNOWN INDICATION

REACTIONS (3)
  - ERYTHEMA [None]
  - INJECTION SITE PAIN [None]
  - PRURITUS [None]
